FAERS Safety Report 25379413 (Version 1)
Quarter: 2025Q2

REPORT INFORMATION
  Report Type: Spontaneous
  Country: US (occurrence: US)
  Receive Date: 20250530
  Receipt Date: 20250530
  Transmission Date: 20250717
  Serious: Yes (Life-Threatening, Hospitalization, Other)
  Sender: RANBAXY
  Company Number: US-SUN PHARMACEUTICAL INDUSTRIES LTD-2025R1-509183

PATIENT
  Age: 35 Year
  Sex: Male

DRUGS (1)
  1. BUPROPION [Suspect]
     Active Substance: BUPROPION
     Indication: Product used for unknown indication

REACTIONS (10)
  - Condition aggravated [Unknown]
  - Sinus tachycardia [Recovered/Resolved]
  - Pulmonary alveolar haemorrhage [Recovered/Resolved]
  - Respiratory distress [Recovered/Resolved]
  - Tachypnoea [Recovered/Resolved]
  - Haemoptysis [Recovered/Resolved]
  - Respiratory failure [Recovered/Resolved]
  - Substance abuse [Unknown]
  - Respiratory failure [Recovered/Resolved]
  - Overdose [Unknown]
